FAERS Safety Report 19291167 (Version 1)
Quarter: 2021Q2

REPORT INFORMATION
  Report Type: Spontaneous
  Country: GB (occurrence: GB)
  Receive Date: 20210523
  Receipt Date: 20210523
  Transmission Date: 20210717
  Serious: Yes (Other)
  Sender: FDA-Public Use
  Company Number: GB-TEVA-2021-GB-1913240

PATIENT
  Sex: Male

DRUGS (9)
  1. DICLOFENAC [Suspect]
     Active Substance: DICLOFENAC
     Dosage: UNK; ADDITIONAL INFO: DRUG TAKEN BEYOND EXPIRY DATE, MEDICATION ERROR, MISUSE
     Route: 065
  2. GABAPENTIN. [Concomitant]
     Active Substance: GABAPENTIN
     Indication: NEURALGIA
     Dosage: UNK; ;
  3. SODIUM VALPROATE [Concomitant]
     Active Substance: VALPROATE SODIUM
     Dosage: UNK; ;
  4. TRAMADOL. [Concomitant]
     Active Substance: TRAMADOL
     Dosage: UNK; ;
  5. DIHYDROCODEINE [Interacting]
     Active Substance: DIHYDROCODEINE
     Dosage: UNK; ;
     Route: 065
  6. EPILIM [Interacting]
     Active Substance: VALPROATE SODIUM
     Indication: EPILEPSY
     Dosage: UNK; ;
     Route: 065
  7. TETRACYCLINE HYDROCHLORIDE. [Interacting]
     Active Substance: TETRACYCLINE HYDROCHLORIDE
     Indication: PRODUCT USED FOR UNKNOWN INDICATION
     Dosage: UNK; ;
     Route: 065
  8. GABAPENTIN. [Concomitant]
     Active Substance: GABAPENTIN
     Indication: INTERVERTEBRAL DISC PROTRUSION
  9. PAROXETINE. [Concomitant]
     Active Substance: PAROXETINE
     Dosage: UNK; ;

REACTIONS (13)
  - Blood urine present [Unknown]
  - Vomiting [Unknown]
  - Drug hypersensitivity [Unknown]
  - Dizziness [Unknown]
  - Syncope [Unknown]
  - Swelling face [Unknown]
  - Nausea [Unknown]
  - Pain [Unknown]
  - Anaphylactic shock [Unknown]
  - Renal disorder [Unknown]
  - Drug interaction [Unknown]
  - Seizure [Unknown]
  - Product dispensing error [Unknown]
